FAERS Safety Report 16358106 (Version 1)
Quarter: 2019Q2

REPORT INFORMATION
  Report Type: Spontaneous
  Country: US (occurrence: US)
  Receive Date: 20190418
  Receipt Date: 20190418
  Transmission Date: 20190711
  Serious: Yes (Hospitalization)
  Sender: FDA-Public Use
  Company Number: None

PATIENT
  Age: 46 Year
  Sex: Female
  Weight: 90.3 kg

DRUGS (5)
  1. PACLITAXEL. [Suspect]
     Active Substance: PACLITAXEL
  2. ASPIRIN. [Concomitant]
     Active Substance: ASPIRIN
  3. CARBOPLATIN. [Suspect]
     Active Substance: CARBOPLATIN
     Dates: start: 20180817, end: 20181207
  4. TRASTUZUMAB. [Suspect]
     Active Substance: TRASTUZUMAB
  5. PERTUZUMAB. [Suspect]
     Active Substance: PERTUZUMAB

REACTIONS (4)
  - Mastitis [None]
  - Breast pain [None]
  - Cerebrovascular accident [None]
  - Brain stem infarction [None]

NARRATIVE: CASE EVENT DATE: 20190309
